FAERS Safety Report 19293040 (Version 1)
Quarter: 2021Q2

REPORT INFORMATION
  Report Type: Spontaneous
  Country: US (occurrence: US)
  Receive Date: 20210524
  Receipt Date: 20210524
  Transmission Date: 20210717
  Serious: No
  Sender: FDA-Public Use
  Company Number: US-SA-2021SA164237

PATIENT
  Sex: Male

DRUGS (1)
  1. DUPIXENT [Suspect]
     Active Substance: DUPILUMAB
     Indication: ASTHMA
     Dosage: 300 MG, QOW
     Route: 058

REACTIONS (6)
  - Middle insomnia [Unknown]
  - Unevaluable event [Unknown]
  - Therapeutic response decreased [Unknown]
  - Decreased activity [Unknown]
  - Eosinophil count abnormal [Unknown]
  - Product use issue [Unknown]
